FAERS Safety Report 10529556 (Version 2)
Quarter: 2015Q1

REPORT INFORMATION
  Report Type: Spontaneous
  Country: SE (occurrence: SE)
  Receive Date: 20141021
  Receipt Date: 20150318
  Transmission Date: 20150720
  Serious: Yes (Hospitalization)
  Sender: FDA-Public Use
  Company Number: SE-BIOGENIDEC-2014BI108587

PATIENT
  Age: 30 Year
  Sex: Female

DRUGS (2)
  1. TYSABRI [Suspect]
     Active Substance: NATALIZUMAB
     Indication: MULTIPLE SCLEROSIS
     Route: 042
     Dates: start: 20140430
  2. BEHEPAN [Concomitant]
     Active Substance: HYDROXOCOBALAMIN

REACTIONS (4)
  - Autoimmune hepatitis [Unknown]
  - Fatigue [Unknown]
  - Musculoskeletal chest pain [Unknown]
  - Nausea [Unknown]

NARRATIVE: CASE EVENT DATE: 201405
